FAERS Safety Report 9482986 (Version 1)
Quarter: 2013Q3

REPORT INFORMATION
  Report Type: Spontaneous
  Country: US (occurrence: US)
  Receive Date: 20130828
  Receipt Date: 20130828
  Transmission Date: 20140515
  Serious: Yes (Other)
  Sender: FDA-Public Use
  Company Number: US-009507513-1308USA012684

PATIENT
  Sex: Female

DRUGS (1)
  1. NUVARING [Suspect]
     Dosage: UNK
     Route: 067
     Dates: start: 20100407, end: 20110923

REACTIONS (3)
  - Pulmonary embolism [Unknown]
  - Pulmonary infarction [Unknown]
  - Thrombophlebitis superficial [Unknown]
